FAERS Safety Report 17186790 (Version 1)
Quarter: 2019Q4

REPORT INFORMATION
  Report Type: Report from Study
  Country: JP (occurrence: JP)
  Receive Date: 20191220
  Receipt Date: 20191220
  Transmission Date: 20200122
  Serious: Yes (Other)
  Sender: FDA-Public Use
  Company Number: JP-JNJFOC-20191224375

PATIENT

DRUGS (1)
  1. INFLIXIMAB, RECOMBINANT [Suspect]
     Active Substance: INFLIXIMAB
     Indication: BEHCET^S SYNDROME
     Route: 042

REACTIONS (8)
  - Disseminated tuberculosis [Unknown]
  - Blood creatine phosphokinase increased [Unknown]
  - Rash [Unknown]
  - Neoplasm [Unknown]
  - Sinusitis [Unknown]
  - Infusion related reaction [Unknown]
  - Infection [Unknown]
  - Rhabdomyolysis [Unknown]
